FAERS Safety Report 5751606-9 (Version None)
Quarter: 2008Q2

REPORT INFORMATION
  Report Type: 
  Country: None (occurrence: None)
  Receive Date: 20080528
  Receipt Date: 20080519
  Transmission Date: 20081010
  Serious: Yes (Other)
  Sender: FDA-Public Use
  Company Number: PHEH2006US03756

PATIENT
  Sex: Female
  Weight: 65.759 kg

DRUGS (6)
  1. VIVELLE-DOT [Suspect]
     Indication: MENOPAUSAL SYMPTOMS
     Dosage: 0.05 MG, UNK
     Route: 062
     Dates: start: 19960501, end: 19970501
  2. PREMARIN [Suspect]
     Indication: HOT FLUSH
     Dosage: 0.625 MG/DAY, UNK
     Dates: start: 19950101, end: 19960501
  3. PROVERA [Suspect]
     Indication: HOT FLUSH
     Dosage: 2.5 MG, UNK
     Route: 048
     Dates: start: 19950101, end: 19970501
  4. PREMPRO [Suspect]
     Indication: HOT FLUSH
     Dosage: 2.5 MG, QD
     Route: 048
     Dates: start: 19970501, end: 19990601
  5. LEXAPRO [Concomitant]
     Indication: DEPRESSION
     Dates: start: 20030101
  6. CELEBREX [Concomitant]

REACTIONS (30)
  - ARTHRITIS [None]
  - BENIGN UTERINE NEOPLASM [None]
  - BREAST CANCER IN SITU [None]
  - BREAST INFECTION [None]
  - BREAST RECONSTRUCTION [None]
  - DEPRESSION [None]
  - DEVICE BREAKAGE [None]
  - DYSPNOEA [None]
  - FATIGUE [None]
  - FOOT OPERATION [None]
  - HYPERSENSITIVITY [None]
  - MITRAL VALVE INCOMPETENCE [None]
  - MITRAL VALVE PROLAPSE [None]
  - OESTROGEN RECEPTOR ASSAY POSITIVE [None]
  - OSTEOPENIA [None]
  - OSTEOPOROSIS [None]
  - PAIN IN EXTREMITY [None]
  - PALPITATIONS [None]
  - PHARYNGEAL OEDEMA [None]
  - PLASTIC SURGERY [None]
  - POSTMENOPAUSAL HAEMORRHAGE [None]
  - PROGESTERONE RECEPTOR ASSAY POSITIVE [None]
  - PRURITUS [None]
  - RADICAL MASTECTOMY [None]
  - RASH [None]
  - SKIN NECROSIS [None]
  - SPINAL OSTEOARTHRITIS [None]
  - SURGERY [None]
  - TRICUSPID VALVE INCOMPETENCE [None]
  - UTERINE DILATION AND CURETTAGE [None]
